FAERS Safety Report 14826115 (Version 1)
Quarter: 2018Q2

REPORT INFORMATION
  Report Type: Other
  Country: JP (occurrence: JP)
  Receive Date: 20180430
  Receipt Date: 20180430
  Transmission Date: 20180711
  Serious: Yes (Other)
  Sender: FDA-Public Use
  Company Number: JP-ORCHID HEALTHCARE-2046814

PATIENT
  Age: 78 Year
  Sex: Male

DRUGS (11)
  1. LEVOFLOXACIN. [Suspect]
     Active Substance: LEVOFLOXACIN
     Indication: CATARACT OPERATION
     Route: 047
  2. SARPOGRELATE [Concomitant]
     Active Substance: SARPOGRELATE
     Route: 065
  3. PIPERACILLIN AND TAZOBACTAM [Concomitant]
     Active Substance: PIPERACILLIN SODIUM\TAZOBACTAM SODIUM
     Route: 065
  4. NICARDIPINE HYDROCHLORIDE. [Concomitant]
     Active Substance: NICARDIPINE HYDROCHLORIDE
     Route: 065
  5. NIFEDIPINE. [Concomitant]
     Active Substance: NIFEDIPINE
     Route: 065
  6. CANDESARTAN. [Concomitant]
     Active Substance: CANDESARTAN
     Route: 065
  7. ATORVASTATIN [Concomitant]
     Active Substance: ATORVASTATIN
     Route: 065
  8. DOXAZOSIN [Concomitant]
     Active Substance: DOXAZOSIN\DOXAZOSIN MESYLATE
     Route: 065
  9. CEFCAPENE PIVOXIL [Concomitant]
     Active Substance: CEFCAPENE PIVOXIL
     Route: 065
  10. MEROPENEM. [Concomitant]
     Active Substance: MEROPENEM
     Route: 065
  11. LEVOFLOXACIN INJECTION [Concomitant]
     Active Substance: LEVOFLOXACIN
     Route: 065

REACTIONS (8)
  - Pleural effusion [None]
  - Sepsis [None]
  - Left ventricular failure [None]
  - Traumatic lung injury [Recovering/Resolving]
  - Pneumonia bacterial [None]
  - Acute kidney injury [None]
  - Lung consolidation [None]
  - Liver disorder [None]
